FAERS Safety Report 9245483 (Version 2)
Quarter: 2013Q2

REPORT INFORMATION
  Report Type: Spontaneous
  Country: IT (occurrence: IT)
  Receive Date: 20130422
  Receipt Date: 20130522
  Transmission Date: 20140414
  Serious: Yes (Death)
  Sender: FDA-Public Use
  Company Number: IT-BRISTOL-MYERS SQUIBB COMPANY-18792853

PATIENT
  Age: 57 Year
  Sex: Male
  Weight: 71 kg

DRUGS (6)
  1. ERBITUX SOLN FOR INF 5MG/ML [Suspect]
     Indication: LARYNGEAL CANCER
     Dosage: IV PHLEB
     Route: 042
     Dates: start: 20130306, end: 20130306
  2. CISPLATIN FOR INJ [Suspect]
     Indication: LARYNGEAL CANCER
     Dosage: IV PHLEB
     Route: 042
     Dates: start: 20130306, end: 20130306
  3. FLUOROURACIL [Suspect]
     Indication: LARYNGEAL CANCER
     Dosage: IV PHLEB?1GM/20ML
     Route: 042
     Dates: start: 20130306, end: 20130311
  4. ALOXI [Concomitant]
     Indication: PROPHYLAXIS OF NAUSEA AND VOMITING
     Route: 042
     Dates: start: 20130306, end: 20130306
  5. MAGNESIUM SULFATE [Concomitant]
     Indication: ELECTROLYTE SUBSTITUTION THERAPY
     Dosage: 1GM/10ML
     Route: 042
     Dates: start: 20130306, end: 20130306
  6. SODIUM CHLORIDE + POTASSIUM [Concomitant]
     Indication: ELECTROLYTE SUBSTITUTION THERAPY
     Route: 042
     Dates: start: 20130306, end: 20130306

REACTIONS (1)
  - Renal failure acute [Fatal]
